FAERS Safety Report 7520746-6 (Version None)
Quarter: 2011Q2

REPORT INFORMATION
  Report Type: 
  Country: None (occurrence: None)
  Receive Date: 20110603
  Receipt Date: 20101123
  Transmission Date: 20111010
  Serious: Yes (Other)
  Sender: FDA-Public Use
  Company Number: AU-BAYER-2010-000026

PATIENT
  Sex: Female

DRUGS (1)
  1. MIRENA [Suspect]
     Dosage: UNK
     Route: 015
     Dates: start: 20100812, end: 20101115

REACTIONS (3)
  - MIGRAINE WITH AURA [None]
  - SUICIDAL IDEATION [None]
  - DEPRESSION [None]
